FAERS Safety Report 9163646 (Version 1)
Quarter: 2013Q1

REPORT INFORMATION
  Report Type: Spontaneous
  Country: US (occurrence: US)
  Receive Date: 20130314
  Receipt Date: 20130314
  Transmission Date: 20140127
  Serious: No
  Sender: FDA-Public Use
  Company Number: US-PFIZER INC-2013083973

PATIENT
  Age: 66 Year
  Sex: Female

DRUGS (23)
  1. XELJANZ [Suspect]
     Dosage: 5 MG, TAKE 1 TABLET ORALLY 2X/DAY
     Route: 048
  2. LASIX [Concomitant]
     Dosage: 20 MG, UNK
  3. ADVAIR DISKU AER [Concomitant]
     Dosage: 100/50, UNK
  4. VENTOLIN HFA AER [Concomitant]
     Dosage: UNK
  5. GLIPIZIDE ER [Concomitant]
     Dosage: 2.5 MG, UNK
  6. SYNTHROID [Concomitant]
     Dosage: 25 UG, UNK
  7. MIRALAX POW 3350 NF [Concomitant]
     Dosage: UNK
  8. VITAMIN D CHW 400UNIT [Concomitant]
     Dosage: UNK
  9. PREDNISONE [Concomitant]
     Dosage: 1 MG, UNK
  10. PLAQUENIL [Concomitant]
     Dosage: 200 MG, UNK
  11. DURAGESIC DIS [Concomitant]
     Dosage: 12 UG/HR
  12. NUCYNTA ER [Concomitant]
     Dosage: 50 MG, UNK
  13. LYRICA [Concomitant]
     Dosage: 25 MG, UNK
  14. LIDODERM DIS [Concomitant]
     Dosage: 5 %, UNK
  15. NEXIUM [Concomitant]
     Dosage: 20 MG, UNK
  16. BENTYL [Concomitant]
     Dosage: 10 MG, UNK
  17. LAMICTAL [Concomitant]
     Dosage: 25 MG, UNK
  18. XANAX [Concomitant]
     Dosage: 0.25 MG, UNK
  19. TOPROL XL [Concomitant]
     Dosage: 25 MG, UNK
  20. LIDAMANTLE CRE HC [Concomitant]
     Dosage: 3-0.5%, UNK
  21. VOLTAREN [Concomitant]
     Dosage: 1 %, UNK
  22. DITROPAN [Concomitant]
     Dosage: 5 MG, UNK
  23. DIFLUCAN [Concomitant]
     Dosage: 50 MG, UNK

REACTIONS (2)
  - Headache [Unknown]
  - Nausea [Unknown]
